FAERS Safety Report 24843158 (Version 1)
Quarter: 2025Q1

REPORT INFORMATION
  Report Type: Report from Study
  Country: US (occurrence: US)
  Receive Date: 20250115
  Receipt Date: 20250115
  Transmission Date: 20250409
  Serious: No
  Sender: HRA PHARMA
  Company Number: US-ORG100014127-2024000277

PATIENT
  Age: 89 Year
  Sex: Female

DRUGS (16)
  1. LYSODREN [Suspect]
     Active Substance: MITOTANE
     Indication: Adrenal gland cancer
     Dosage: 1 TABLET TWICE DAILY FOR 1 WEEK
     Route: 048
     Dates: start: 20240924
  2. LYSODREN [Suspect]
     Active Substance: MITOTANE
     Indication: Adrenal gland cancer
     Dosage: 2 TABLETS (1000MG) TWICE DAILY
     Route: 048
     Dates: start: 20241001
  3. LYSODREN [Suspect]
     Active Substance: MITOTANE
     Indication: Adrenal gland cancer
     Dosage: QWITCHED TO 100 MG/ML SUSPENSION
     Route: 048
     Dates: start: 20241017, end: 2024
  4. AMLODIPINE [Concomitant]
     Active Substance: AMLODIPINE BESYLATE
     Indication: Product used for unknown indication
  5. eliquis tablet 2.5mg [Concomitant]
     Indication: Product used for unknown indication
  6. Escitalopram Tab 5mg [Concomitant]
     Indication: Product used for unknown indication
  7. FUROSEMIDE [Concomitant]
     Active Substance: FUROSEMIDE
     Indication: Product used for unknown indication
  8. JARDIANCE [Concomitant]
     Active Substance: EMPAGLIFLOZIN
     Indication: Product used for unknown indication
  9. Novolog Inj FlexPen [Concomitant]
     Indication: Product used for unknown indication
  10. OXYCODONE [Concomitant]
     Active Substance: OXYCODONE
     Indication: Product used for unknown indication
  11. Pantoprazole Tab 40mg [Concomitant]
     Indication: Product used for unknown indication
  12. Potassium Chloride Tab 10mEq ER [Concomitant]
     Indication: Product used for unknown indication
  13. Telmisartan Tab 80mg [Concomitant]
     Indication: Product used for unknown indication
  14. Triamcinolone PST Den 0.1%: [Concomitant]
     Indication: Product used for unknown indication
  15. Tylenol PM Tab 25-500mg [Concomitant]
     Indication: Product used for unknown indication
  16. KLOR-CON M20 TAB 20MEQ [Concomitant]
     Indication: Product used for unknown indication

REACTIONS (4)
  - Choking sensation [Not Recovered/Not Resolved]
  - Drug intolerance [Unknown]
  - Product use complaint [Unknown]
  - Wrong technique in product usage process [Unknown]

NARRATIVE: CASE EVENT DATE: 20240101
